FAERS Safety Report 7263268-2 (Version None)
Quarter: 2011Q1

REPORT INFORMATION
  Report Type: 
  Country: None (occurrence: None)
  Receive Date: 20110130
  Receipt Date: 20100930
  Transmission Date: 20110831
  Serious: No
  Sender: FDA-Public Use
  Company Number: US-ABBOTT-10P-163-0675815-00

PATIENT
  Sex: Female
  Weight: 81.72 kg

DRUGS (4)
  1. FOLIC ACID [Concomitant]
     Indication: PRODUCT USED FOR UNKNOWN INDICATION
  2. OMEPRAZOLE [Concomitant]
     Indication: PRODUCT USED FOR UNKNOWN INDICATION
  3. HUMIRA [Suspect]
     Indication: PSORIATIC ARTHROPATHY
     Route: 058
     Dates: start: 20080317
  4. HUMIRA [Suspect]
     Indication: PSORIASIS

REACTIONS (4)
  - PSORIASIS [None]
  - TUBERCULIN TEST POSITIVE [None]
  - DRUG INEFFECTIVE [None]
  - VITAMIN D DECREASED [None]
